FAERS Safety Report 5886240-3 (Version None)
Quarter: 2008Q3

REPORT INFORMATION
  Report Type: 
  Country: None (occurrence: None)
  Receive Date: 20080917
  Receipt Date: 20071213
  Transmission Date: 20090109
  Serious: Yes (Other)
  Sender: FDA-Public Use
  Company Number: IT-ROCHE-571363

PATIENT
  Sex: Male
  Weight: 74 kg

DRUGS (2)
  1. PEGASYS [Suspect]
     Route: 065
     Dates: start: 20060210, end: 20060520
  2. REBETOL [Suspect]
     Route: 065
     Dates: start: 20060210, end: 20060520

REACTIONS (1)
  - SYNCOPE [None]
